FAERS Safety Report 5338477-X (Version None)
Quarter: 2007Q2

REPORT INFORMATION
  Report Type: 
  Country: None (occurrence: None)
  Receive Date: 20070322
  Receipt Date: 20060727
  Transmission Date: 20071010
  Serious: Yes (Other)
  Sender: FDA-Public Use
  Company Number: 200612047BCC

PATIENT
  Age: 61 Year
  Sex: Male
  Weight: 163.2949 kg

DRUGS (9)
  1. ALEVE [Suspect]
     Indication: ARTHRALGIA
     Dosage: 440 MG, ONCE, ORAL
     Route: 048
     Dates: start: 20060327
  2. BAYER ASPIRIN (ACETYLSALICYCLIC ACID) [Suspect]
  3. ATENOLOL [Concomitant]
  4. COZAAR [Concomitant]
  5. ZOLOFT [Concomitant]
  6. HUMALOG [Concomitant]
  7. LANTUS [Concomitant]
  8. LASIX [Concomitant]
  9. CRESTOR [Concomitant]

REACTIONS (11)
  - ASTHENIA [None]
  - DIZZINESS [None]
  - EYE DISORDER [None]
  - FAECAL INCONTINENCE [None]
  - FEELING HOT [None]
  - FLUSHING [None]
  - HYPERHIDROSIS [None]
  - HYPERSENSITIVITY [None]
  - PRURITUS GENERALISED [None]
  - URINARY INCONTINENCE [None]
  - VISUAL DISTURBANCE [None]
